FAERS Safety Report 20858209 (Version 1)
Quarter: 2022Q2

REPORT INFORMATION
  Report Type: Spontaneous
  Country: RU (occurrence: RU)
  Receive Date: 20220521
  Receipt Date: 20220521
  Transmission Date: 20220721
  Serious: Yes (Other)
  Sender: FDA-Public Use
  Company Number: RU-MLMSERVICE-20220509-3547662-1

PATIENT
  Age: 13 Year
  Sex: Male

DRUGS (4)
  1. AMITRIPTYLINE [Suspect]
     Active Substance: AMITRIPTYLINE
     Indication: Erythromelalgia
  2. GABAPENTIN [Concomitant]
     Active Substance: GABAPENTIN
     Indication: Erythromelalgia
  3. CARBAMAZEPINE [Concomitant]
     Active Substance: CARBAMAZEPINE
     Indication: Erythromelalgia
  4. PREGABALIN [Concomitant]
     Active Substance: PREGABALIN
     Indication: Erythromelalgia

REACTIONS (5)
  - Erythromelalgia [Not Recovered/Not Resolved]
  - Therapeutic product effect incomplete [Unknown]
  - Hypertension [Unknown]
  - Toxic skin eruption [Unknown]
  - Condition aggravated [Not Recovered/Not Resolved]
